FAERS Safety Report 22953639 (Version 2)
Quarter: 2023Q4

REPORT INFORMATION
  Report Type: Report from Study
  Country: AU (occurrence: AU)
  Receive Date: 20230918
  Receipt Date: 20231003
  Transmission Date: 20240110
  Serious: Yes (Other)
  Sender: FDA-Public Use
  Company Number: AU-GILEAD-2023-0643291

PATIENT
  Sex: Male

DRUGS (4)
  1. BICTEGRAVIR\EMTRICITABINE\TENOFOVIR ALAFENAMIDE [Suspect]
     Active Substance: BICTEGRAVIR\EMTRICITABINE\TENOFOVIR ALAFENAMIDE
     Indication: HIV infection
     Route: 065
  2. EMTRICITABINE\RILPIVIRINE\TENOFOVIR DISOPROXIL FUMARATE [Suspect]
     Active Substance: EMTRICITABINE\RILPIVIRINE\TENOFOVIR DISOPROXIL FUMARATE
     Indication: HIV infection
     Route: 065
  3. KIVEXA [Suspect]
     Active Substance: ABACAVIR SULFATE\LAMIVUDINE
     Indication: HIV infection
     Route: 065
  4. PREZCOBIX [Suspect]
     Active Substance: COBICISTAT\DARUNAVIR ETHANOLATE
     Indication: HIV infection
     Route: 065

REACTIONS (10)
  - Lipodystrophy acquired [Unknown]
  - Fatigue [Unknown]
  - Nausea [Unknown]
  - Diarrhoea [Unknown]
  - Blood cholesterol increased [Unknown]
  - Mood altered [Unknown]
  - Sleep disorder [Unknown]
  - Virologic failure [Unknown]
  - Drug resistance [Unknown]
  - Product dose omission issue [Unknown]
